FAERS Safety Report 23421150 (Version 2)
Quarter: 2024Q1

REPORT INFORMATION
  Report Type: Spontaneous
  Country: IT (occurrence: IT)
  Receive Date: 20240119
  Receipt Date: 20240216
  Transmission Date: 20240409
  Serious: Yes (Life-Threatening, Hospitalization, Other)
  Sender: FDA-Public Use
  Company Number: IT-BAXTER-2023BAX032070

PATIENT
  Age: 51 Year
  Sex: Female

DRUGS (6)
  1. CYCLOPHOSPHAMIDE [Suspect]
     Active Substance: CYCLOPHOSPHAMIDE
     Indication: Neoadjuvant therapy
     Dosage: UNK, EV, FIRST CYCLE
     Route: 050
     Dates: start: 20230517, end: 20230517
  2. CYCLOPHOSPHAMIDE [Suspect]
     Active Substance: CYCLOPHOSPHAMIDE
     Dosage: UNK, CONTINUING: NO, FIRST CYCLE
     Route: 042
     Dates: start: 20230517, end: 20230517
  3. EPIRUBICIN [Suspect]
     Active Substance: EPIRUBICIN
     Indication: Neoadjuvant therapy
     Dosage: UNK, EV, FIRST CYCLE
     Route: 050
     Dates: start: 20230517, end: 20230517
  4. EPIRUBICIN [Suspect]
     Active Substance: EPIRUBICIN
     Dosage: UNK, CONTINUING: NO, FIRST CYCLE
     Route: 042
     Dates: start: 20230517, end: 20230517
  5. KEYTRUDA [Suspect]
     Active Substance: PEMBROLIZUMAB
     Dosage: UNK, EV
     Route: 050
     Dates: start: 20230330
  6. KEYTRUDA [Suspect]
     Active Substance: PEMBROLIZUMAB
     Indication: Neoadjuvant therapy
     Dosage: UNK, CONTNUING: NO
     Route: 042
     Dates: start: 20230309, end: 20230503

REACTIONS (2)
  - Thrombocytopenia [Recovered/Resolved]
  - Febrile neutropenia [Recovered/Resolved]

NARRATIVE: CASE EVENT DATE: 20230529
